FAERS Safety Report 5483868-X (Version None)
Quarter: 2007Q4

REPORT INFORMATION
  Report Type: 
  Country: None (occurrence: None)
  Receive Date: 20071012
  Receipt Date: 20071002
  Transmission Date: 20080405
  Serious: Yes (Death)
  Sender: FDA-Public Use
  Company Number: GB-JNJFOC-20071001609

PATIENT
  Age: 37 Year
  Sex: Male
  Weight: 120.5 kg

DRUGS (4)
  1. TRAMADOL HCL [Suspect]
     Indication: PAIN IN EXTREMITY
     Route: 048
  2. AMITRIPTYLINE HYDROCHLORIDE [Suspect]
     Indication: DEPRESSION
     Route: 048
  3. DICLOFENAC SODIUM [Suspect]
     Indication: PAIN IN EXTREMITY
     Route: 048
  4. DULOXETINE [Suspect]
     Indication: DEPRESSION
     Route: 065

REACTIONS (1)
  - SUDDEN DEATH [None]
